FAERS Safety Report 7425218-5 (Version None)
Quarter: 2011Q2

REPORT INFORMATION
  Report Type: 
  Country: None (occurrence: None)
  Receive Date: 20110420
  Receipt Date: 20110408
  Transmission Date: 20111010
  Serious: Yes (Hospitalization)
  Sender: FDA-Public Use
  Company Number: DK-RANBAXY-2011RR-43646

PATIENT
  Age: 76 Year
  Sex: Male

DRUGS (2)
  1. SIMVASTATIN [Suspect]
     Indication: HYPERCHOLESTEROLAEMIA
     Dosage: 40 MG, QD
     Route: 048
     Dates: start: 20090818, end: 20090929
  2. 28101109682 SANDIMMUN 50 MG/ML KONC. T. INF.VAESK. OPL [Suspect]
     Indication: APLASTIC ANAEMIA
     Dosage: 100 MG, BID
     Dates: start: 20090807, end: 20100112

REACTIONS (2)
  - HEPATOTOXICITY [None]
  - MYOPATHY [None]
